FAERS Safety Report 6702752-4 (Version None)
Quarter: 2010Q2

REPORT INFORMATION
  Report Type: 
  Country: None (occurrence: None)
  Receive Date: 20100429
  Receipt Date: 20100419
  Transmission Date: 20101027
  Serious: Yes (Other)
  Sender: FDA-Public Use
  Company Number: PT-BAXTER-2010BH010252

PATIENT
  Age: 73 Year
  Sex: Male

DRUGS (1)
  1. SUPRANE [Suspect]
     Indication: GENERAL ANAESTHESIA
     Route: 055
     Dates: start: 20100401, end: 20100401

REACTIONS (3)
  - HYPOTENSION [None]
  - PRODUCT COLOUR ISSUE [None]
  - PRODUCT DEPOSIT [None]
